FAERS Safety Report 9803321 (Version 2)
Quarter: 2014Q1

REPORT INFORMATION
  Report Type: Spontaneous
  Country: US (occurrence: US)
  Receive Date: 20140108
  Receipt Date: 20140324
  Transmission Date: 20141002
  Serious: Yes (Hospitalization)
  Sender: FDA-Public Use
  Company Number: US-BAYER-2014-002957

PATIENT
  Age: 35 Year
  Sex: Female
  Weight: 58.05 kg

DRUGS (4)
  1. MIRENA [Suspect]
     Indication: CONTRACEPTION
     Dosage: 20 MCG/24HR, CONT
     Route: 015
     Dates: start: 201112, end: 201304
  2. PRENAVITE [Concomitant]
  3. ATIVAN [Concomitant]
  4. FLAGYL [Concomitant]

REACTIONS (5)
  - Device dislocation [None]
  - Pregnancy with contraceptive device [Recovered/Resolved]
  - Abortion spontaneous [None]
  - Injury [None]
  - Drug ineffective [None]
